FAERS Safety Report 4551775-2 (Version None)
Quarter: 2005Q1

REPORT INFORMATION
  Report Type: 
  Country: None (occurrence: None)
  Receive Date: 20050111
  Receipt Date: 20041229
  Transmission Date: 20050727
  Serious: Yes (Death)
  Sender: FDA-Public Use
  Company Number: 2004AP02895

PATIENT
  Age: 73 Year
  Sex: Female

DRUGS (1)
  1. ACCOLATE [Suspect]
     Dosage: 4 TABLETS PRESCRIBED TO BE TAKEN OVER 19 DAYS
     Dates: start: 20020518

REACTIONS (4)
  - ASTHMA [None]
  - GLOMERULONEPHRITIS CHRONIC [None]
  - LIVER DISORDER [None]
  - VERTEBROBASILAR INSUFFICIENCY [None]
